FAERS Safety Report 18575128 (Version 1)
Quarter: 2020Q4

REPORT INFORMATION
  Report Type: Spontaneous
  Country: CA (occurrence: CA)
  Receive Date: 20201203
  Receipt Date: 20201203
  Transmission Date: 20210114
  Serious: Yes (Other)
  Sender: FDA-Public Use
  Company Number: CA-PFIZER INC-2020431593

PATIENT
  Age: 30 Year
  Sex: Female

DRUGS (3)
  1. SULFASALAZINE. [Suspect]
     Active Substance: SULFASALAZINE
     Indication: RHEUMATOID ARTHRITIS
     Dosage: 500 MG, 4X/DAY (2 TABLETS AT MORNING [AM] AND 2 TABLETS AT AFTERNOON [PM])
     Route: 048
     Dates: start: 201912, end: 2020
  2. NAPROXEN. [Concomitant]
     Active Substance: NAPROXEN
     Indication: PAIN
     Dosage: 500 MG, AS NEEDED
  3. METHOTREXATE SODIUM. [Suspect]
     Active Substance: METHOTREXATE SODIUM
     Indication: RHEUMATOID ARTHRITIS
     Dosage: 15 MG, WEEKLY
     Dates: start: 201911, end: 2020

REACTIONS (3)
  - Condition aggravated [Unknown]
  - Therapeutic product effect incomplete [Unknown]
  - Chest pain [Unknown]

NARRATIVE: CASE EVENT DATE: 20201121
